FAERS Safety Report 25224963 (Version 6)
Quarter: 2025Q2

REPORT INFORMATION
  Report Type: Spontaneous
  Country: US (occurrence: US)
  Receive Date: 20250422
  Receipt Date: 20250606
  Transmission Date: 20250716
  Serious: No
  Sender: PFIZER
  Company Number: US-PFIZER INC-202500082498

PATIENT
  Age: 70 Year
  Sex: Female
  Weight: 50.794 kg

DRUGS (4)
  1. ESTRING [Suspect]
     Active Substance: ESTRADIOL
     Indication: Vulvovaginal discomfort
     Route: 067
     Dates: start: 20250420, end: 20250425
  2. ESTRING [Suspect]
     Active Substance: ESTRADIOL
     Indication: Vulvovaginal discomfort
  3. ESTRING [Suspect]
     Active Substance: ESTRADIOL
     Indication: Vulvovaginal dryness
  4. ESTRING [Suspect]
     Active Substance: ESTRADIOL
     Indication: Vulvovaginal pruritus

REACTIONS (4)
  - Vulvovaginal pain [Unknown]
  - Patient-device incompatibility [Unknown]
  - Device difficult to use [Unknown]
  - Vaginal haemorrhage [Unknown]
